FAERS Safety Report 14617826 (Version 1)
Quarter: 2018Q1

REPORT INFORMATION
  Report Type: Spontaneous
  Country: US (occurrence: US)
  Receive Date: 20180309
  Receipt Date: 20180309
  Transmission Date: 20180509
  Serious: No
  Sender: FDA-Public Use
  Company Number: US-GLAXOSMITHKLINE-US2018038687

PATIENT
  Age: 45 Year
  Sex: Female
  Weight: 95 kg

DRUGS (1)
  1. EQUATE NICOTINE [Suspect]
     Active Substance: NICOTINE
     Indication: PRODUCT USED FOR UNKNOWN INDICATION
     Dosage: 7 MG, 1D
     Dates: start: 20180103, end: 20180304

REACTIONS (3)
  - Application site discharge [Unknown]
  - Application site urticaria [Unknown]
  - Application site vesicles [Unknown]

NARRATIVE: CASE EVENT DATE: 20180305
